FAERS Safety Report 19489397 (Version 4)
Quarter: 2021Q4

REPORT INFORMATION
  Report Type: Spontaneous
  Country: US (occurrence: US)
  Receive Date: 20210703
  Receipt Date: 20211119
  Transmission Date: 20220303
  Serious: No
  Sender: FDA-Public Use
  Company Number: US-JNJFOC-20210701545

PATIENT
  Age: 83 Year
  Sex: Male
  Weight: 84.5 kg

DRUGS (13)
  1. ERLEADA [Suspect]
     Active Substance: APALUTAMIDE
     Indication: Prostate cancer
     Route: 048
     Dates: start: 20201124, end: 20201228
  2. ERLEADA [Suspect]
     Active Substance: APALUTAMIDE
     Route: 048
     Dates: start: 20210111
  3. XGEVA [Concomitant]
     Active Substance: DENOSUMAB
     Indication: Prostate cancer
     Route: 065
  4. LUPRON [Concomitant]
     Active Substance: LEUPROLIDE ACETATE
     Indication: Prostate cancer
     Route: 058
     Dates: start: 20201119
  5. HYDROCHLOROTHIAZIDE [Concomitant]
     Active Substance: HYDROCHLOROTHIAZIDE
     Indication: Hypertension
     Route: 065
  6. DOXAZOSIN [Concomitant]
     Active Substance: DOXAZOSIN MESYLATE
     Indication: Prostate cancer
     Route: 065
  7. HUMALOG [Concomitant]
     Active Substance: INSULIN LISPRO
     Indication: Diabetes mellitus
     Route: 065
  8. LEVEMIR [Concomitant]
     Active Substance: INSULIN DETEMIR
     Indication: Diabetes mellitus
  9. GLUCOSAMIN [GLUCOSAMINE HYDROCHLORIDE] [Concomitant]
  10. LATANOPROST [Concomitant]
     Active Substance: LATANOPROST
     Route: 065
  11. SIMVASTATIN [Concomitant]
     Active Substance: SIMVASTATIN
     Indication: Blood cholesterol
     Route: 065
  12. CASODEX [Concomitant]
     Active Substance: BICALUTAMIDE
     Indication: Prostate cancer
     Dosage: 1-50MG TABLET
     Route: 065
     Dates: start: 20201112
  13. ELIGARD [Concomitant]
     Active Substance: LEUPROLIDE ACETATE
     Indication: Prostate cancer
     Route: 058
     Dates: start: 20201119

REACTIONS (3)
  - Rash maculo-papular [Recovered/Resolved]
  - Off label use [Unknown]
  - Incorrect dose administered [Unknown]

NARRATIVE: CASE EVENT DATE: 20201228
